FAERS Safety Report 9553994 (Version 1)
Quarter: 2013Q3

REPORT INFORMATION
  Report Type: Spontaneous
  Country: US (occurrence: US)
  Receive Date: 20130925
  Receipt Date: 20130925
  Transmission Date: 20140515
  Serious: Yes (Death)
  Sender: FDA-Public Use
  Company Number: US-GLAXOSMITHKLINE-A1042469A

PATIENT
  Age: 67 Year
  Sex: Female

DRUGS (5)
  1. FLOVENT [Suspect]
     Indication: CHRONIC OBSTRUCTIVE PULMONARY DISEASE
     Route: 055
     Dates: start: 2001, end: 2009
  2. ALBUTEROL [Concomitant]
     Route: 055
  3. CONCURRENT PROPHYLAXIS [Concomitant]
     Indication: LUNG TRANSPLANT
  4. NEBULIZER [Concomitant]
     Route: 055
  5. CONCURRENT MEDICATIONS [Concomitant]

REACTIONS (1)
  - Death [Fatal]
